FAERS Safety Report 10758829 (Version 7)
Quarter: 2016Q3

REPORT INFORMATION
  Report Type: Spontaneous
  Country: US (occurrence: US)
  Receive Date: 20150203
  Receipt Date: 20160805
  Transmission Date: 20161109
  Serious: No
  Sender: FDA-Public Use
  Company Number: US-PFIZER INC-2015035591

PATIENT
  Age: 74 Year
  Sex: Male
  Weight: 81.63 kg

DRUGS (3)
  1. SUTENT [Suspect]
     Active Substance: SUNITINIB MALATE
     Indication: GASTROINTESTINAL STROMAL TUMOUR
     Dosage: 37.5 MG DAILY FOR 4 WEEKS ON/ 2 WEEKS OFF
     Route: 048
     Dates: start: 20140620
  2. SUTENT [Suspect]
     Active Substance: SUNITINIB MALATE
     Dosage: 37.5 MG, DAILY
     Route: 048
     Dates: start: 20140611
  3. SUTENT [Suspect]
     Active Substance: SUNITINIB MALATE
     Dosage: 37.5 MG, CYCLIC (DAYS 1-28 Q42 DAYS)
     Route: 048
     Dates: start: 20140611

REACTIONS (10)
  - Disease progression [Unknown]
  - Paranasal sinus hypersecretion [Unknown]
  - Drug dose omission [Unknown]
  - Diarrhoea [Unknown]
  - Dry skin [Not Recovered/Not Resolved]
  - Sinus congestion [Unknown]
  - Arthralgia [Not Recovered/Not Resolved]
  - Gastrointestinal stromal tumour [Unknown]
  - Fatigue [Not Recovered/Not Resolved]
  - Dry mouth [Unknown]

NARRATIVE: CASE EVENT DATE: 20140721
